FAERS Safety Report 8491151-3 (Version None)
Quarter: 2012Q3

REPORT INFORMATION
  Report Type: 
  Country: None (occurrence: None)
  Receive Date: 20120706
  Receipt Date: 20120628
  Transmission Date: 20120928
  Serious: Yes (Hospitalization)
  Sender: FDA-Public Use
  Company Number: GB-PFIZER INC-2011276617

PATIENT
  Age: 75 Year
  Sex: Male

DRUGS (7)
  1. PIOGLITAZONE HYDROCHLORIDE [Concomitant]
     Dosage: UNK
  2. RAMIPRIL [Concomitant]
     Dosage: UNK
  3. ASPIRIN [Concomitant]
     Dosage: UNK
  4. GLICLAZIDE [Concomitant]
     Dosage: UNK
  5. SITAGLIPTIN PHOSPHATE [Interacting]
     Indication: TYPE 2 DIABETES MELLITUS
     Dosage: UNK
     Route: 048
  6. METFORMIN [Concomitant]
     Dosage: UNK
  7. ATORVASTATIN CALCIUM [Suspect]
     Dosage: UNK

REACTIONS (2)
  - DRUG INTERACTION [None]
  - RHABDOMYOLYSIS [None]
